FAERS Safety Report 9832139 (Version 1)
Quarter: 2014Q1

REPORT INFORMATION
  Report Type: Spontaneous
  Country: AU (occurrence: AU)
  Receive Date: 20140121
  Receipt Date: 20140121
  Transmission Date: 20141002
  Serious: Yes (Other)
  Sender: FDA-Public Use
  Company Number: AU-MYLANLABS-2014S1000717

PATIENT
  Sex: Male

DRUGS (4)
  1. PREDNISOLONE [Suspect]
     Indication: BRONCHOPULMONARY ASPERGILLOSIS ALLERGIC
     Dosage: 1 MG/KG/DAY, TAPERED OVER 3 MONTHS
     Route: 048
  2. PREDNISONE [Suspect]
     Indication: BRONCHOPULMONARY ASPERGILLOSIS ALLERGIC
     Dosage: 0.5 MG/KG/DAY
     Route: 065
  3. METHYLPREDNISOLONE [Suspect]
     Indication: BRONCHOPULMONARY ASPERGILLOSIS ALLERGIC
     Dosage: 15 MG/KG/DAY PULSED MONTHLY OVER 3D
     Route: 042
  4. ITRACONAZOLE [Concomitant]
     Indication: BRONCHOPULMONARY ASPERGILLOSIS ALLERGIC
     Dosage: 200 MG/DAY
     Route: 065

REACTIONS (5)
  - Growth retardation [Not Recovered/Not Resolved]
  - Adrenal insufficiency [Recovered/Resolved]
  - Adrenocortical insufficiency acute [Recovered/Resolved]
  - Bone density decreased [Recovered/Resolved]
  - Weight increased [Recovered/Resolved]
